FAERS Safety Report 10856621 (Version 2)
Quarter: 2015Q2

REPORT INFORMATION
  Report Type: Report from Study
  Country: BR (occurrence: BR)
  Receive Date: 20150223
  Receipt Date: 20150408
  Transmission Date: 20150821
  Serious: Yes (Other)
  Sender: FDA-Public Use
  Company Number: BR-BAYER-2015-023481

PATIENT
  Sex: Female

DRUGS (1)
  1. BETAFERON [Suspect]
     Active Substance: INTERFERON BETA-1B
     Indication: RELAPSING-REMITTING MULTIPLE SCLEROSIS
     Dosage: DOSE OF WHOLE AMPOULE, QOD
     Route: 058
     Dates: start: 2012

REACTIONS (5)
  - Cystitis bacterial [Not Recovered/Not Resolved]
  - Injection site erythema [Not Recovered/Not Resolved]
  - Incorrect drug administration rate [None]
  - Urinary incontinence [Not Recovered/Not Resolved]
  - Injection site haemorrhage [Not Recovered/Not Resolved]

NARRATIVE: CASE EVENT DATE: 2014
